FAERS Safety Report 20404243 (Version 1)
Quarter: 2022Q1

REPORT INFORMATION
  Report Type: Spontaneous
  Country: GB (occurrence: GB)
  Receive Date: 20220131
  Receipt Date: 20220131
  Transmission Date: 20220423
  Serious: Yes (Other)
  Sender: FDA-Public Use
  Company Number: None

PATIENT

DRUGS (1)
  1. LISINOPRIL [Suspect]
     Active Substance: LISINOPRIL
     Indication: Product used for unknown indication

REACTIONS (4)
  - Lip swelling [Unknown]
  - Paraesthesia oral [Unknown]
  - Lip pain [Unknown]
  - Food allergy [Unknown]
